FAERS Safety Report 7439648-9 (Version None)
Quarter: 2011Q2

REPORT INFORMATION
  Report Type: 
  Country: None (occurrence: None)
  Receive Date: 20110427
  Receipt Date: 20110412
  Transmission Date: 20111010
  Serious: No
  Sender: FDA-Public Use
  Company Number: US-JNJFOC-20110406464

PATIENT
  Sex: Female
  Weight: 50.8 kg

DRUGS (9)
  1. DURAGESIC-50 [Suspect]
     Route: 062
  2. DURAGESIC-50 [Suspect]
     Dosage: NDC NUMBER 50458-0091-05
     Route: 062
  3. DURAGESIC-50 [Suspect]
     Indication: PAIN
     Route: 062
  4. FENTANYL-100 [Suspect]
     Indication: PAIN
     Route: 062
  5. DURAGESIC-50 [Suspect]
     Route: 062
  6. ESTERIFIED ESTROGENS WITH METHYLTESTOSTERONE [Concomitant]
     Indication: HORMONE LEVEL ABNORMAL
     Dosage: 1.25/2.5 MCG/TABLET/DAILY
     Route: 048
  7. DURAGESIC-50 [Suspect]
     Route: 062
  8. DURAGESIC-50 [Suspect]
     Dosage: NDC NUMBER 50458-0091-05
     Route: 062
  9. HYDROCHLOROTHIAZIDE [Concomitant]
     Indication: OEDEMA PERIPHERAL
     Dosage: 1.25/2.5 MCG/TABLET/DAILY
     Route: 048

REACTIONS (7)
  - FEELING ABNORMAL [None]
  - TREATMENT NONCOMPLIANCE [None]
  - VOMITING [None]
  - APPLICATION SITE ULCER [None]
  - WITHDRAWAL SYNDROME [None]
  - INCORRECT DRUG ADMINISTRATION DURATION [None]
  - PAIN [None]
